APPROVED DRUG PRODUCT: PIROXICAM
Active Ingredient: PIROXICAM
Strength: 10MG
Dosage Form/Route: CAPSULE;ORAL
Application: A210347 | Product #001 | TE Code: AB
Applicant: STRIDES PHARMA GLOBAL PTE LTD
Approved: Jan 26, 2018 | RLD: No | RS: No | Type: RX